FAERS Safety Report 5899753-5 (Version None)
Quarter: 2008Q3

REPORT INFORMATION
  Report Type: 
  Country: None (occurrence: None)
  Receive Date: 20080829
  Receipt Date: 20080819
  Transmission Date: 20090109
  Serious: Yes (Hospitalization, Other)
  Sender: FDA-Public Use
  Company Number: AEUSA200800185

PATIENT
  Age: 79 Year
  Sex: Male
  Weight: 65.7716 kg

DRUGS (4)
  1. GAMASTAN [Suspect]
     Indication: ANTIVIRAL PROPHYLAXIS
     Dosage: 1.3 ML;1X;IM
     Route: 030
     Dates: start: 20080709, end: 20080709
  2. PREDNISONE [Concomitant]
  3. SLUMEDROL [Concomitant]
  4. ALBUTEROL [Concomitant]

REACTIONS (9)
  - BACTERIA SPUTUM IDENTIFIED [None]
  - CARDIOMEGALY [None]
  - CHRONIC OBSTRUCTIVE PULMONARY DISEASE [None]
  - CONDITION AGGRAVATED [None]
  - DIARRHOEA [None]
  - HAEMOPHILUS INFECTION [None]
  - NAUSEA [None]
  - RASH [None]
  - VOMITING [None]
